FAERS Safety Report 25979695 (Version 2)
Quarter: 2025Q4

REPORT INFORMATION
  Report Type: Spontaneous
  Country: US (occurrence: US)
  Receive Date: 20251030
  Receipt Date: 20251117
  Transmission Date: 20260118
  Serious: Yes (Death, Hospitalization)
  Sender: TEVA
  Company Number: US-TEVA-VS-3387205

PATIENT
  Age: 22 Year
  Sex: Male

DRUGS (7)
  1. POTASSIUM CHLORIDE [Suspect]
     Active Substance: POTASSIUM CHLORIDE
     Indication: Diabetic ketoacidosis
     Route: 065
  2. CALCIUM CHLORIDE\POTASSIUM CHLORATE\SODIUM LACTATE [Suspect]
     Active Substance: CALCIUM CHLORIDE\POTASSIUM CHLORATE\SODIUM LACTATE
     Indication: Shock
     Dosage: BOLUS
     Route: 065
  3. SODIUM CHLORIDE [Suspect]
     Active Substance: SODIUM CHLORIDE
     Indication: Diabetic ketoacidosis
     Dosage: GIVEN WITH POTASSIUM CHLORIDE
     Route: 065
  4. SODIUM CHLORIDE [Suspect]
     Active Substance: SODIUM CHLORIDE
     Indication: Diabetic ketoacidosis
     Dosage: BOLUS
     Route: 065
  5. NOREPINEPHRINE BITARTRATE [Suspect]
     Active Substance: NOREPINEPHRINE BITARTRATE
     Indication: Shock
     Route: 065
  6. MANNITOL [Suspect]
     Active Substance: MANNITOL
     Indication: Brain oedema
     Route: 042
  7. INSULIN NOS [Suspect]
     Active Substance: INSULIN NOS
     Indication: Diabetic ketoacidosis
     Route: 042

REACTIONS (1)
  - Drug ineffective [Fatal]
